FAERS Safety Report 11192685 (Version 1)
Quarter: 2015Q2

REPORT INFORMATION
  Report Type: Spontaneous
  Country: US (occurrence: None)
  Receive Date: 20150615
  Receipt Date: 20150615
  Transmission Date: 20150821
  Serious: Yes (Hospitalization)
  Sender: FDA-Public Use
  Company Number: None

PATIENT
  Age: 69 Year
  Sex: Male
  Weight: 81.2 kg

DRUGS (2)
  1. CARBOPLATIN. [Suspect]
     Active Substance: CARBOPLATIN
     Dates: end: 20150319
  2. TAXOL [Suspect]
     Active Substance: PACLITAXEL
     Dates: end: 20150319

REACTIONS (4)
  - Diarrhoea [None]
  - Asthenia [None]
  - Dehydration [None]
  - Dizziness [None]

NARRATIVE: CASE EVENT DATE: 20150529
